FAERS Safety Report 9840874 (Version 1)
Quarter: 2013Q4

REPORT INFORMATION
  Report Type: Spontaneous
  Country: US (occurrence: None)
  Receive Date: 20131223
  Receipt Date: 20131223
  Transmission Date: 20140711
  Serious: Yes (Other)
  Sender: FDA-Public Use
  Company Number: 220318LEO

PATIENT
  Sex: Male

DRUGS (5)
  1. PICATO [Suspect]
     Indication: ACTINIC KERATOSIS
     Dosage: 1 IN 1 D TOPICAL
     Route: 061
     Dates: start: 20130125, end: 20130127
  2. PICATO [Suspect]
     Dosage: 1 IN 1 D TOPICAL
     Route: 061
     Dates: start: 20130125, end: 20130127
  3. PICATO [Suspect]
     Dosage: 1 IN 1 D TOPICAL
     Route: 061
     Dates: start: 20130125, end: 20130127
  4. PICATO [Suspect]
     Dosage: 1 IN 1 D TOPICAL
     Route: 061
     Dates: start: 20130125, end: 20130127
  5. PICATO [Suspect]
     Dosage: 1 IN 1 D TOPICAL
     Route: 061
     Dates: start: 20130125, end: 20130127

REACTIONS (6)
  - Application site erythema [None]
  - Application site swelling [None]
  - Application site exfoliation [None]
  - Application site scab [None]
  - Application site reaction [None]
  - Drug administered at inappropriate site [None]
